FAERS Safety Report 7864923-3 (Version None)
Quarter: 2011Q4

REPORT INFORMATION
  Report Type: 
  Country: None (occurrence: None)
  Receive Date: 20111028
  Receipt Date: 20100920
  Transmission Date: 20120403
  Serious: No
  Sender: FDA-Public Use
  Company Number: US-GLAXOSMITHKLINE-A0882077A

PATIENT
  Age: 91 Year
  Sex: Male

DRUGS (9)
  1. ALLEGRA [Concomitant]
  2. ADVAIR DISKUS 100/50 [Suspect]
     Indication: ASTHMA
     Dosage: 1PUFF TWICE PER DAY
     Route: 055
  3. MIDODRINE HYDROCHLORIDE [Concomitant]
  4. ALBUTEROL [Concomitant]
  5. COUMADIN [Concomitant]
  6. LIPITOR [Concomitant]
  7. ARICEPT [Concomitant]
  8. LANOXIN [Concomitant]
  9. TESSALON [Concomitant]

REACTIONS (1)
  - BLOOD GLUCOSE ABNORMAL [None]
